FAERS Safety Report 4352685-6 (Version None)
Quarter: 2004Q2

REPORT INFORMATION
  Report Type: 
  Country: None (occurrence: None)
  Receive Date: 20040429
  Receipt Date: 20040302
  Transmission Date: 20050107
  Serious: Yes (Death)
  Sender: FDA-Public Use
  Company Number: 2003-BP-07030PF

PATIENT
  Age: 75 Year
  Sex: Male

DRUGS (4)
  1. SPIRIVA [Suspect]
     Dosage: 18 MCG (18 MCG, 18 MCG DAILY)
     Route: 055
  2. OXYGEN (OXYGEN) [Concomitant]
  3. SALBUTAMOL (SALBUTAMOL) [Concomitant]
  4. HEMODIALYSIS [Concomitant]

REACTIONS (2)
  - ACUTE MYOCARDIAL INFARCTION [None]
  - PULMONARY OEDEMA [None]
